FAERS Safety Report 7586666-6 (Version None)
Quarter: 2011Q3

REPORT INFORMATION
  Report Type: 
  Country: None (occurrence: None)
  Receive Date: 20110701
  Receipt Date: 20110620
  Transmission Date: 20111222
  Serious: Yes (Other)
  Sender: FDA-Public Use
  Company Number: US-ELI_LILLY_AND_COMPANY-US201106006512

PATIENT
  Sex: Female

DRUGS (3)
  1. LANTUS [Concomitant]
  2. CABERGOLINE [Concomitant]
     Indication: PITUITARY TUMOUR
     Dosage: UNK
  3. HUMALOG [Suspect]
     Indication: TYPE 1 DIABETES MELLITUS
     Dosage: UNK UNK, PRN
     Route: 058

REACTIONS (3)
  - BLOOD GLUCOSE INCREASED [None]
  - PITUITARY TUMOUR [None]
  - DRUG INEFFECTIVE [None]
